FAERS Safety Report 8954235 (Version 2)
Quarter: 2012Q4

REPORT INFORMATION
  Report Type: 
  Country: US (occurrence: US)
  Receive Date: 20121207
  Receipt Date: 20121227
  Transmission Date: 20130627
  Serious: Yes (Death)
  Sender: FDA-Public Use
  Company Number: US-PFIZER INC-2012303338

PATIENT
  Age: 72 Year
  Sex: Female

DRUGS (5)
  1. REVATIO [Suspect]
     Indication: PULMONARY HYPERTENSION
     Dosage: 20 mg, 3x/day
     Route: 048
     Dates: start: 20120914
  2. DIGOXIN [Concomitant]
     Indication: HEART FAILURE
     Dosage: 0.25 mg, daily
     Dates: start: 2008, end: 20121108
  3. DIGOXIN [Concomitant]
     Indication: ARRHYTHMIA
  4. TORSEMIDE [Concomitant]
     Indication: HEART FAILURE
     Dosage: 60mg in am and 20mg in pm
     Dates: start: 201210, end: 20121108
  5. WARFARIN [Concomitant]
     Indication: CARDIAC VALVE DISEASE
     Dosage: 2.5 mg, daily
     Dates: start: 2008, end: 20121108

REACTIONS (3)
  - Cardiac arrest [Fatal]
  - Cardiac failure [Fatal]
  - Arrhythmia [Fatal]
